FAERS Safety Report 6408043 (Version 2)
Quarter: 2013Q1

REPORT INFORMATION
  Report Type: Spontaneous
  Country: US (occurrence: None)
  Receive Date: 20070828
  Receipt Date: 20121226
  Transmission Date: 20140127
  Serious: Yes (Hospitalization, Other)
  Sender: FDA-Public Use
  Company Number: 2007US-09344

PATIENT
  Age: 73 Year
  Sex: Male

DRUGS (5)
  1. ISOPTIN SR [Suspect]
     Indication: PRODUCT USED FOR UNKNOWN INDICATION
     Dosage: 240 MG, SINGLE, ORAL
     Route: 048
  2. PROPRANOLOL [Suspect]
     Indication: PRODUCT USED FOR UNKNOWN INDICATION
     Dosage: 120 MG, QD
  3. GLYBURIDE (GLIBENCLAMIDE) [Suspect]
     Indication: PRODUCT USED FOR UNKNOWN INDICATION
  4. LISINOPRIL [Concomitant]
  5. LISINOPRIL (LISINOPRIL) [Concomitant]

REACTIONS (12)
  - Toxicity to various agents [None]
  - Cerebral hypoperfusion [None]
  - Cardiomegaly [None]
  - Atrioventricular block [None]
  - Rales [None]
  - Lethargy [None]
  - Confusional state [None]
  - Presyncope [None]
  - Dyspnoea [None]
  - Chest pain [None]
  - Bradycardia [None]
  - Hypotension [None]
